FAERS Safety Report 7281407-4 (Version None)
Quarter: 2011Q1

REPORT INFORMATION
  Report Type: 
  Country: None (occurrence: None)
  Receive Date: 20110208
  Receipt Date: 20110128
  Transmission Date: 20110831
  Serious: Yes (Hospitalization, Other)
  Sender: FDA-Public Use
  Company Number: US-ELI_LILLY_AND_COMPANY-US201101007645

PATIENT
  Age: 62 Year
  Sex: Male
  Weight: 116.55 kg

DRUGS (8)
  1. INSULIN [Concomitant]
  2. EFFIENT [Suspect]
     Indication: MYOCARDIAL INFARCTION
     Dosage: 1 D/F, LOADING DOSE
     Dates: start: 20110119, end: 20110119
  3. ASPIRIN [Concomitant]
  4. PROTONIX [Concomitant]
  5. PERIDEX [Concomitant]
  6. LOPRESSOR [Concomitant]
  7. IRON [Concomitant]
  8. NEXIUM [Concomitant]

REACTIONS (2)
  - CARDIAC COMPLICATION ASSOCIATED WITH DEVICE [None]
  - HAEMORRHAGE [None]
